FAERS Safety Report 7055711-9 (Version None)
Quarter: 2010Q4

REPORT INFORMATION
  Report Type: 
  Country: None (occurrence: None)
  Receive Date: 20101021
  Receipt Date: 20101018
  Transmission Date: 20110411
  Serious: Yes (Hospitalization)
  Sender: FDA-Public Use
  Company Number: DE-ROCHE-715343

PATIENT
  Sex: Female
  Weight: 79 kg

DRUGS (4)
  1. CAPECITABINE [Suspect]
     Indication: RECTAL CANCER
     Dosage: D1-33 W/O WEEKENDS, ACTUAL DOSE GIVEN (AS LAST ADMINISTRATION): 1500 MG
     Route: 048
     Dates: start: 20100520
  2. OXALIPLATIN [Suspect]
     Indication: RECTAL CANCER
     Dosage: ACTUAL DOSE GIVEN (AS LAST ADMINISTRATION) ON 18 JUNE 2010: 80 MG, FREQUENCY- D1, D8, D15, D22, D29
     Route: 042
     Dates: start: 20100520
  3. VERATRIL [Concomitant]
     Indication: PROPHYLAXIS
     Dosage: SHEDULE WITH OXALIPLATIN
     Route: 042
     Dates: start: 20100520, end: 20100618
  4. DEXAMETHASONE [Concomitant]
     Indication: PROPHYLAXIS
     Dosage: SHEDULE WITH OXALIPLATIN
     Route: 042
     Dates: start: 20100520, end: 20100618

REACTIONS (1)
  - DEEP VEIN THROMBOSIS [None]
